FAERS Safety Report 4885766-9 (Version None)
Quarter: 2006Q1

REPORT INFORMATION
  Report Type: 
  Country: None (occurrence: None)
  Receive Date: 20060120
  Receipt Date: 20060113
  Transmission Date: 20060701
  Serious: Yes (Other)
  Sender: FDA-Public Use
  Company Number: FR-JNJFOC-20060103019

PATIENT
  Age: 51 Year
  Sex: Female

DRUGS (4)
  1. REMICADE [Suspect]
     Dosage: 7TH INFUSION
     Route: 042
  2. REMICADE [Suspect]
     Dosage: 6TH INFUSION
     Route: 042
  3. REMICADE [Suspect]
     Dosage: 4 INFUSIONS
     Route: 042
  4. REMICADE [Suspect]
     Indication: RHEUMATOID ARTHRITIS
     Dosage: 1ST INFUSION
     Route: 042

REACTIONS (3)
  - INFLUENZA LIKE ILLNESS [None]
  - PLEURAL EFFUSION [None]
  - TUBERCULOSIS [None]
